FAERS Safety Report 8701921 (Version 3)
Quarter: 2013Q1

REPORT INFORMATION
  Report Type: Report from Study
  Country: US (occurrence: US)
  Receive Date: 20120803
  Receipt Date: 20130315
  Transmission Date: 20140127
  Serious: Yes (Hospitalization, Other)
  Sender: FDA-Public Use
  Company Number: US-ABBOTT-12P-163-0961717-00

PATIENT
  Age: 20 Year
  Sex: Male
  Weight: 86.26 kg

DRUGS (8)
  1. HUMIRA 40 MG/0.8 ML PEN [Suspect]
     Indication: CROHN^S DISEASE
     Dosage: 160 MG, LOADING DOSE
     Dates: start: 20120531, end: 20120531
  2. VANCOMYCIN [Suspect]
     Indication: PYREXIA
  3. VANCOMYCIN [Suspect]
     Indication: PURULENT DISCHARGE
  4. ZOSYN [Suspect]
     Indication: PYREXIA
  5. ZOSYN [Suspect]
     Indication: PURULENT DISCHARGE
  6. TORADOL [Suspect]
     Indication: PAIN MANAGEMENT
  7. FLAGYL [Suspect]
     Indication: PRODUCT USED FOR UNKNOWN INDICATION
  8. VITAMIN D [Concomitant]
     Indication: VITAMIN SUPPLEMENTATION

REACTIONS (23)
  - Pyrexia [Recovered/Resolved]
  - Small intestinal perforation [Recovering/Resolving]
  - Large intestine perforation [Recovering/Resolving]
  - Abscess intestinal [Recovering/Resolving]
  - Splenomegaly [Recovering/Resolving]
  - Back pain [Unknown]
  - Psoas abscess [Unknown]
  - Mononucleosis heterophile test positive [Unknown]
  - Pyrexia [Recovered/Resolved]
  - Purulent discharge [Unknown]
  - Renal failure acute [Recovered/Resolved]
  - Blood creatinine abnormal [Recovered/Resolved]
  - Ileal perforation [Unknown]
  - Retroperitoneal abscess [Unknown]
  - Caecitis [Unknown]
  - Ileitis [Unknown]
  - Haemorrhage [Unknown]
  - Pain [Unknown]
  - Leukocytosis [Unknown]
  - Abscess intestinal [Unknown]
  - Wound secretion [Recovered/Resolved]
  - Urticaria [Unknown]
  - Pain [Unknown]
